FAERS Safety Report 16852023 (Version 5)
Quarter: 2020Q1

REPORT INFORMATION
  Report Type: Report from Study
  Country: IT (occurrence: IT)
  Receive Date: 20190925
  Receipt Date: 20200325
  Transmission Date: 20200409
  Serious: Yes (Other)
  Sender: FDA-Public Use
  Company Number: IT-MYLANLABS-2019M1088568

PATIENT
  Age: 23 Year
  Sex: Female

DRUGS (6)
  1. CLOZAPINE. [Suspect]
     Active Substance: CLOZAPINE
     Indication: SCHIZOPHRENIA
     Dosage: 300 MILLIGRAM, QD
     Route: 048
     Dates: start: 20190710, end: 20190819
  2. CLOPIXOL                           /00876704/ [Interacting]
     Active Substance: ZUCLOPENTHIXOL ACETATE
     Dosage: 1 DOSAGE FORM, CYCLE
     Route: 030
     Dates: start: 20190710
  3. VALDORM                            /00246102/ [Interacting]
     Active Substance: FLURAZEPAM HYDROCHLORIDE
     Indication: SLEEP DISORDER DUE TO GENERAL MEDICAL CONDITION, INSOMNIA TYPE
     Dosage: 1 DOSAGE FORM, QD
     Route: 048
     Dates: start: 20190710
  4. NOAN [Interacting]
     Active Substance: DIAZEPAM
     Indication: SOMATIC SYMPTOM DISORDER
     Dosage: 6 DOSAGE FORM, QD
     Route: 048
     Dates: start: 20190710
  5. CLOPIXOL                           /00876704/ [Interacting]
     Active Substance: ZUCLOPENTHIXOL ACETATE
     Indication: SCHIZOPHRENIA
     Dosage: 3 DOSAGE FORM, QD
     Route: 030
     Dates: start: 20190710
  6. BISOPROLOL FUMARATE. [Concomitant]
     Active Substance: BISOPROLOL FUMARATE
     Indication: PRODUCT USED FOR UNKNOWN INDICATION
     Dosage: 2.5 MILLIGRAM
     Route: 048
     Dates: start: 20190710

REACTIONS (3)
  - Drug interaction [Recovered/Resolved]
  - Presyncope [Recovered/Resolved]
  - Visual impairment [Recovered/Resolved]

NARRATIVE: CASE EVENT DATE: 20190809
